FAERS Safety Report 10156542 (Version 2)
Quarter: 2014Q2

REPORT INFORMATION
  Report Type: Report from Study
  Country: PT (occurrence: PT)
  Receive Date: 20140507
  Receipt Date: 20140512
  Transmission Date: 20141212
  Serious: Yes (Death, Disabling, Other)
  Sender: FDA-Public Use
  Company Number: PT-CELGENEUS-130-C5013-14045803

PATIENT
  Age: 82 Year
  Sex: Male

DRUGS (1)
  1. CC-5013 [Suspect]
     Indication: MYELODYSPLASTIC SYNDROME
     Dosage: 5 MILLIGRAM
     Route: 048
     Dates: start: 20111129, end: 20120319

REACTIONS (1)
  - Chronic lymphocytic leukaemia [Fatal]
